FAERS Safety Report 8539435-4 (Version None)
Quarter: 2012Q3

REPORT INFORMATION
  Report Type: 
  Country: None (occurrence: None)
  Receive Date: 20120726
  Receipt Date: 20120717
  Transmission Date: 20120928
  Serious: Yes (Hospitalization)
  Sender: FDA-Public Use
  Company Number: US-JNJFOC-20120609832

PATIENT
  Sex: Female
  Weight: 44.45 kg

DRUGS (3)
  1. ANTIBIOTIC, UNSPECIFIED [Suspect]
     Indication: PRODUCT USED FOR UNKNOWN INDICATION
     Route: 065
     Dates: start: 20120201
  2. ZITHROMAX [Suspect]
     Indication: FUNGAL INFECTION
     Route: 065
  3. REMICADE [Suspect]
     Indication: COLITIS ULCERATIVE
     Dosage: DOSAGE INTERVAL 2 WEEKS THEN 4 WEEKS
     Route: 042
     Dates: start: 20120301

REACTIONS (9)
  - EATING DISORDER [None]
  - CLOSTRIDIAL INFECTION [None]
  - NASOPHARYNGITIS [None]
  - URINARY TRACT INFECTION [None]
  - FUNGAL INFECTION [None]
  - WEIGHT INCREASED [None]
  - MALAISE [None]
  - COLITIS [None]
  - DRUG INEFFECTIVE [None]
